FAERS Safety Report 7974683-3 (Version None)
Quarter: 2011Q4

REPORT INFORMATION
  Report Type: 
  Country: None (occurrence: None)
  Receive Date: 20111213
  Receipt Date: 20111201
  Transmission Date: 20120403
  Serious: Yes (Other)
  Sender: FDA-Public Use
  Company Number: PHBS2005BR07634

PATIENT
  Age: 4 Year
  Sex: Male

DRUGS (6)
  1. RITALIN [Suspect]
     Indication: PSYCHOMOTOR HYPERACTIVITY
     Dosage: 3 TABS, DAILY
     Route: 048
  2. NEOZINE [Concomitant]
     Indication: AUTISM
     Dosage: 1TAB IN MORNING AND 1 TAB IN NIGHT
  3. TOFRANIL [Suspect]
     Dosage: 1 TAB, AT NIGHT
  4. RITALIN [Suspect]
     Dosage: 2 TABS, DAILY
     Route: 048
  5. CARBOLITIUM [Suspect]
     Dosage: UNK UKN, UNK
  6. RISPERIDONE [Concomitant]
     Indication: AUTISM
     Dosage: 1TAB IN MORNING AND HALF TAB AT NIGHT
     Route: 048

REACTIONS (5)
  - ACCIDENT [None]
  - AGGRESSION [None]
  - HYPERSENSITIVITY [None]
  - PSYCHOLOGICAL TRAUMA [None]
  - CONFUSIONAL STATE [None]
